FAERS Safety Report 25072491 (Version 2)
Quarter: 2025Q2

REPORT INFORMATION
  Report Type: Spontaneous
  Country: SG (occurrence: None)
  Receive Date: 20250313
  Receipt Date: 20250403
  Transmission Date: 20250716
  Serious: Yes (Hospitalization)
  Sender: ORION
  Company Number: SG-MLMSERVICE-20250228-PI430483-00218-3

PATIENT
  Age: 70 Year
  Sex: Female
  Weight: 53 kg

DRUGS (2)
  1. METHOTREXATE [Suspect]
     Active Substance: METHOTREXATE
     Indication: Psoriasis
  2. HERBALS [Suspect]
     Active Substance: HERBALS
     Indication: Product used for unknown indication

REACTIONS (8)
  - Toxicity to various agents [Unknown]
  - Acute kidney injury [Recovered/Resolved]
  - Bone marrow failure [Recovered/Resolved]
  - Ulcer haemorrhage [Recovered/Resolved]
  - Skin erosion [Recovered/Resolved]
  - Ulcer [Recovered/Resolved]
  - Pancytopenia [Recovered/Resolved]
  - Mouth ulceration [Recovered/Resolved]
